FAERS Safety Report 22374049 (Version 1)
Quarter: 2023Q2

REPORT INFORMATION
  Report Type: Spontaneous
  Country: CN (occurrence: None)
  Receive Date: 20230526
  Receipt Date: 20230526
  Transmission Date: 20230722
  Serious: Yes (Other)
  Sender: FDA-Public Use
  Company Number: 2023A118859

PATIENT
  Age: 37 Year
  Sex: Male

DRUGS (2)
  1. DAPAGLIFLOZIN [Suspect]
     Active Substance: DAPAGLIFLOZIN
     Indication: Blood glucose decreased
     Route: 048
     Dates: start: 20230315, end: 20230514
  2. METFORMIN [Concomitant]
     Active Substance: METFORMIN HYDROCHLORIDE

REACTIONS (3)
  - Ketoacidosis [Unknown]
  - Condition aggravated [Unknown]
  - Hyperlipidaemia [Unknown]

NARRATIVE: CASE EVENT DATE: 20230514
